FAERS Safety Report 6431373-6 (Version None)
Quarter: 2009Q4

REPORT INFORMATION
  Report Type: 
  Country: None (occurrence: None)
  Receive Date: 20091106
  Receipt Date: 20091026
  Transmission Date: 20100525
  Serious: Yes (Other)
  Sender: FDA-Public Use
  Company Number: PHEH2009US10895

PATIENT
  Sex: Female
  Weight: 58.957 kg

DRUGS (3)
  1. GLEEVEC [Suspect]
     Indication: NEOPLASM MALIGNANT
     Dosage: 400 MG, QD
     Dates: start: 20090601
  2. GLEEVEC [Suspect]
     Dosage: 800 MG, QD
     Route: 048
  3. PANTOPRAZOLE [Concomitant]
     Dosage: 40 MG, UNK

REACTIONS (2)
  - GASTROINTESTINAL STROMAL TUMOUR [None]
  - HEADACHE [None]
